FAERS Safety Report 6558145-6 (Version None)
Quarter: 2010Q1

REPORT INFORMATION
  Report Type: 
  Country: None (occurrence: None)
  Receive Date: 20100129
  Receipt Date: 20100122
  Transmission Date: 20100710
  Serious: Yes (Hospitalization)
  Sender: FDA-Public Use
  Company Number: B0629564A

PATIENT
  Sex: Male

DRUGS (2)
  1. HYCAMTIN [Suspect]
     Indication: NEUROBLASTOMA
     Dosage: .55MG PER DAY
     Route: 042
     Dates: start: 20091028
  2. TEMODAL [Suspect]
     Indication: NEUROBLASTOMA
     Dosage: 100MG PER DAY
     Route: 048
     Dates: start: 20091028

REACTIONS (6)
  - CONSTIPATION [None]
  - FEBRILE BONE MARROW APLASIA [None]
  - HAEMATOTOXICITY [None]
  - HEADACHE [None]
  - PAIN IN EXTREMITY [None]
  - PETECHIAE [None]
